FAERS Safety Report 15684199 (Version 2)
Quarter: 2019Q1

REPORT INFORMATION
  Report Type: Report from Study
  Country: US (occurrence: US)
  Receive Date: 20181204
  Receipt Date: 20190103
  Transmission Date: 20190417
  Serious: Yes (Hospitalization, Other)
  Sender: FDA-Public Use
  Company Number: US-GILEAD-2018-0378152

PATIENT
  Age: 80 Year
  Sex: Female

DRUGS (12)
  1. AMBRISENTAN [Suspect]
     Active Substance: AMBRISENTAN
     Indication: PULMONARY HYPERTENSION
     Dosage: 10 MG, QD
     Route: 065
     Dates: start: 20110326
  2. CALCITRIOL. [Concomitant]
     Active Substance: CALCITRIOL
  3. FUROSEMIDE. [Concomitant]
     Active Substance: FUROSEMIDE
  4. AMITRIPTYLIN [Concomitant]
     Active Substance: AMITRIPTYLINE
  5. CINNAMON [CINNAMOMUM VERUM] [Concomitant]
  6. FERROUS SULFATE. [Concomitant]
     Active Substance: FERROUS SULFATE
  7. CALCIUM [Concomitant]
     Active Substance: CALCIUM
  8. PRAVASTATIN. [Concomitant]
     Active Substance: PRAVASTATIN
  9. METOLAZONE. [Concomitant]
     Active Substance: METOLAZONE
  10. GLIPIZIDE. [Concomitant]
     Active Substance: GLIPIZIDE
  11. POTASSIUM CHLORIDE. [Concomitant]
     Active Substance: POTASSIUM CHLORIDE
  12. REVATIO [Concomitant]
     Active Substance: SILDENAFIL CITRATE

REACTIONS (5)
  - Encephalopathy [Unknown]
  - Product dose omission [Recovered/Resolved]
  - Diabetes mellitus [Not Recovered/Not Resolved]
  - Syncope [Not Recovered/Not Resolved]
  - Malaise [Not Recovered/Not Resolved]

NARRATIVE: CASE EVENT DATE: 201811
